FAERS Safety Report 18193140 (Version 3)
Quarter: 2021Q3

REPORT INFORMATION
  Report Type: Report from Study
  Country: NL (occurrence: NL)
  Receive Date: 20200825
  Receipt Date: 20210729
  Transmission Date: 20211014
  Serious: Yes (Hospitalization)
  Sender: FDA-Public Use
  Company Number: NVSC2020NL135085

PATIENT
  Age: 32 Year
  Sex: Female
  Weight: 87.9 kg

DRUGS (24)
  1. DALTEPARIN [Concomitant]
     Active Substance: DALTEPARIN
     Indication: EMBOLISM
     Dosage: UNK
     Route: 065
     Dates: start: 20200515, end: 20200714
  2. LYNESTRENOL [Concomitant]
     Active Substance: LYNESTRENOL
     Indication: CONTRACEPTION
     Dosage: UNK
     Route: 065
     Dates: start: 20200428, end: 20200907
  3. CARBOPLATIN. [Suspect]
     Active Substance: CARBOPLATIN
     Indication: B-CELL LYMPHOMA
     Dosage: 750 MG, ONCE/SINGLE
     Route: 042
     Dates: start: 20200407
  4. PARACETAMOL [Concomitant]
     Active Substance: ACETAMINOPHEN
     Indication: ANALGESIC THERAPY
     Dosage: UNK
     Route: 065
     Dates: start: 20200429, end: 20200430
  5. CYCLOPHOSPHAMIDE. [Concomitant]
     Active Substance: CYCLOPHOSPHAMIDE
     Indication: CHEMOTHERAPY
     Dosage: UNK
     Route: 065
     Dates: start: 20200806, end: 20200806
  6. FLUDARABINE [Concomitant]
     Active Substance: FLUDARABINE PHOSPHATE
     Dosage: UNK
     Route: 065
     Dates: start: 20200807, end: 20200807
  7. RITUXIMAB. [Suspect]
     Active Substance: RITUXIMAB
     Indication: B-CELL LYMPHOMA
     Dosage: 791.46 MG, ONCE/SINGLE
     Route: 042
     Dates: start: 20200406
  8. COTRIMOXAZOL [Concomitant]
     Active Substance: SULFAMETHOXAZOLE\TRIMETHOPRIM
     Indication: INFECTION PROPHYLAXIS
     Dosage: UNK
     Route: 065
     Dates: start: 20200110
  9. FUROSEMIDE. [Concomitant]
     Active Substance: FUROSEMIDE
     Indication: DIURETIC THERAPY
     Dosage: UNK
     Route: 065
     Dates: start: 20200429, end: 20200501
  10. CYCLOPHOSPHAMIDE. [Concomitant]
     Active Substance: CYCLOPHOSPHAMIDE
     Dosage: UNK
     Route: 065
     Dates: start: 20200808, end: 20200808
  11. CEFTRIAXON [Concomitant]
     Active Substance: CEFTRIAXONE
     Indication: PYREXIA
     Dosage: UNK
     Route: 065
     Dates: start: 20200429, end: 20200501
  12. MAGNESIUMHYDROXIDE [Concomitant]
     Indication: GASTROINTESTINAL DISORDER PROPHYLAXIS
     Dosage: UNK
     Route: 065
     Dates: start: 20200407, end: 20200515
  13. CLINDAMYCIN. [Concomitant]
     Active Substance: CLINDAMYCIN
     Indication: PYREXIA
     Dosage: UNK
     Route: 065
     Dates: start: 20200501, end: 20200506
  14. CYCLOPHOSPHAMIDE. [Concomitant]
     Active Substance: CYCLOPHOSPHAMIDE
     Dosage: UNK
     Route: 065
     Dates: start: 20200807, end: 20200807
  15. ETOPOSIDE. [Suspect]
     Active Substance: ETOPOSIDE
     Indication: B-CELL LYMPHOMA
     Dosage: 211.05 MG, ONCE/SINGLE
     Route: 042
     Dates: start: 20200406
  16. VALACICLOVIR [Concomitant]
     Active Substance: VALACYCLOVIR HYDROCHLORIDE
     Indication: INFECTION PROPHYLAXIS
     Dosage: UNK
     Route: 065
     Dates: start: 20200110
  17. FLUDARABINE [Concomitant]
     Active Substance: FLUDARABINE PHOSPHATE
     Indication: CHEMOTHERAPY
     Dosage: UNK
     Route: 065
     Dates: start: 20200806, end: 20200806
  18. PARACETAMOL [Concomitant]
     Active Substance: ACETAMINOPHEN
     Indication: FEBRILE NEUTROPENIA
     Dosage: UNK
     Route: 065
     Dates: start: 20200515, end: 20200806
  19. BRENTUXIMAB [Concomitant]
     Active Substance: BRENTUXIMAB VEDOTIN
     Indication: CHEMOTHERAPY
     Dosage: UNK
     Route: 065
     Dates: start: 20200715, end: 20200715
  20. IFOSFAMIDE. [Suspect]
     Active Substance: IFOSFAMIDE
     Indication: B-CELL LYMPHOMA
     Dosage: 10552.74 MG, CONTINUOUS INFUSION 24H
     Route: 042
     Dates: start: 20200407
  21. FLUCONAZOL [Concomitant]
     Active Substance: FLUCONAZOLE
     Indication: PROPHYLAXIS
     Dosage: UNK
     Route: 065
     Dates: start: 20200515, end: 20200521
  22. FLUDARABINE [Concomitant]
     Active Substance: FLUDARABINE PHOSPHATE
     Dosage: UNK
     Route: 065
     Dates: start: 20200808, end: 20200808
  23. MESNA. [Suspect]
     Active Substance: MESNA
     Indication: B-CELL LYMPHOMA
     Dosage: 2110.55 MG, ONCE/SINGLE
     Route: 042
     Dates: start: 20200407
  24. CIPROFLOXACIN. [Concomitant]
     Active Substance: CIPROFLOXACIN
     Indication: INFECTION PROPHYLAXIS
     Dosage: UNK
     Route: 065
     Dates: start: 20200505, end: 20200521

REACTIONS (1)
  - Febrile neutropenia [Recovered/Resolved]

NARRATIVE: CASE EVENT DATE: 20200515
